FAERS Safety Report 8999822 (Version 3)
Quarter: 2013Q2

REPORT INFORMATION
  Report Type: Spontaneous
  Country: US (occurrence: US)
  Receive Date: 20130102
  Receipt Date: 20130405
  Transmission Date: 20140414
  Serious: Yes (Other)
  Sender: FDA-Public Use
  Company Number: US-INCYTE CORPORATION-2012IN002640

PATIENT
  Age: 62 Year
  Sex: Female
  Weight: 91.43 kg

DRUGS (4)
  1. JAKAFI [Suspect]
     Indication: MYELOFIBROSIS
     Dosage: 10 MG, QD
     Route: 048
     Dates: start: 20120313, end: 20120814
  2. JAKAFI [Suspect]
     Dosage: 10 MG, QD
     Route: 048
     Dates: start: 201212, end: 20130114
  3. JAKAFI [Suspect]
     Dosage: 10 MG, QD
     Route: 048
     Dates: start: 20130225
  4. TYLENOL [Concomitant]

REACTIONS (2)
  - Knee arthroplasty [Recovered/Resolved]
  - Splenomegaly [Recovered/Resolved]
